FAERS Safety Report 23115360 (Version 1)
Quarter: 2023Q4

REPORT INFORMATION
  Report Type: Report from Study
  Country: GB (occurrence: GB)
  Receive Date: 20231027
  Receipt Date: 20231027
  Transmission Date: 20240110
  Serious: Yes (Hospitalization)
  Sender: FDA-Public Use
  Company Number: GB-BoehringerIngelheim-2019-BI-100090

PATIENT
  Age: 80 Year
  Sex: Male
  Weight: 75.1 kg

DRUGS (1)
  1. ALTEPLASE [Suspect]
     Active Substance: ALTEPLASE
     Indication: Ischaemic stroke
     Route: 042
     Dates: start: 20190816

REACTIONS (2)
  - Haemorrhagic transformation stroke [Recovered/Resolved]
  - NIH stroke scale score increased [Recovered/Resolved with Sequelae]

NARRATIVE: CASE EVENT DATE: 20190817
